FAERS Safety Report 7013412-7 (Version None)
Quarter: 2010Q3

REPORT INFORMATION
  Report Type: 
  Country: None (occurrence: None)
  Receive Date: 20100924
  Receipt Date: 20100920
  Transmission Date: 20110219
  Serious: Yes (Other)
  Sender: FDA-Public Use
  Company Number: US-BRISTOL-MYERS SQUIBB COMPANY-15222334

PATIENT
  Age: 48 Year
  Sex: Female
  Weight: 54 kg

DRUGS (4)
  1. KENALOG [Suspect]
     Indication: UPPER RESPIRATORY TRACT INFECTION
     Dosage: ALSO ON 25OCT10;
     Dates: start: 20070101
  2. SUDAFED 12 HOUR [Concomitant]
  3. TYLENOL [Concomitant]
  4. ROCEPHIN [Concomitant]
     Indication: UPPER RESPIRATORY TRACT INFECTION
     Dates: start: 20081025

REACTIONS (6)
  - ARTHRALGIA [None]
  - INJECTION SITE ATROPHY [None]
  - MUSCLE ATROPHY [None]
  - PAIN [None]
  - PANIC ATTACK [None]
  - WEIGHT DECREASED [None]
